FAERS Safety Report 17235815 (Version 3)
Quarter: 2020Q3

REPORT INFORMATION
  Report Type: Report from Study
  Country: US (occurrence: US)
  Receive Date: 20200106
  Receipt Date: 20200721
  Transmission Date: 20201102
  Serious: Yes (Hospitalization)
  Sender: FDA-Public Use
  Company Number: NVSC2020US000691

PATIENT
  Age: 59 Year
  Sex: Male

DRUGS (3)
  1. ENTRESTO [Suspect]
     Active Substance: SACUBITRIL\VALSARTAN
     Dosage: 1 DF, (24 MG OF SACUBITRIL/ 26 MG OF VALSARTAN), BID
     Route: 048
     Dates: start: 201906
  2. ENTRESTO [Suspect]
     Active Substance: SACUBITRIL\VALSARTAN
     Indication: CARDIAC FAILURE
     Dosage: 1 DF, BID
     Route: 048
     Dates: start: 201807
  3. ENTRESTO [Suspect]
     Active Substance: SACUBITRIL\VALSARTAN
     Dosage: 0.5 DF, BID (1/2 OF PILL 2 TIMES A DAY)
     Route: 048
     Dates: start: 202001

REACTIONS (2)
  - International normalised ratio abnormal [Unknown]
  - Hypotension [Unknown]

NARRATIVE: CASE EVENT DATE: 20200101
